FAERS Safety Report 6603465-X (Version None)
Quarter: 2010Q1

REPORT INFORMATION
  Report Type: 
  Country: None (occurrence: None)
  Receive Date: 20100226
  Receipt Date: 20090622
  Transmission Date: 20100710
  Serious: No
  Sender: FDA-Public Use
  Company Number: A0793097A

PATIENT
  Age: 39 Year
  Sex: Female

DRUGS (2)
  1. VALTREX [Suspect]
     Indication: GENITAL HERPES
     Dosage: 500MG TWICE PER DAY
     Route: 048
     Dates: start: 20020701, end: 20080301
  2. TYLENOL-500 [Concomitant]

REACTIONS (4)
  - DRUG EXPOSURE DURING PREGNANCY [None]
  - HEADACHE [None]
  - MALAISE [None]
  - NAUSEA [None]
